FAERS Safety Report 11194851 (Version 3)
Quarter: 2015Q3

REPORT INFORMATION
  Report Type: Spontaneous
  Country: BR (occurrence: BR)
  Receive Date: 20150617
  Receipt Date: 20150802
  Transmission Date: 20151125
  Serious: Yes (Hospitalization, Other)
  Sender: FDA-Public Use
  Company Number: BR-AMGEN-BRASP2015039277

PATIENT
  Age: 85 Year
  Sex: Female
  Weight: 64 kg

DRUGS (13)
  1. ENBREL [Suspect]
     Active Substance: ETANERCEPT
     Indication: RHEUMATOID ARTHRITIS
     Dosage: 50 MG, 1X/WEEK
     Route: 058
     Dates: start: 201412, end: 201412
  2. VITAMIN C [Concomitant]
     Active Substance: ASCORBIC ACID
     Dosage: 1 CAPSULE (UNSPECIFIED DOSE), DAILY
  3. ANCORON [Concomitant]
     Active Substance: AMIODARONE HYDROCHLORIDE
     Indication: CARDIAC PACEMAKER INSERTION
     Dosage: ONE TABLET (200 MG), DAILY
     Dates: start: 2011
  4. OMEGA 3                            /01334101/ [Concomitant]
     Active Substance: OMEGA-3 FATTY ACIDS
     Dosage: 3 CAPSULES (UNSPECIFIED DOSE), DAILY
  5. LUFTAL                             /00159501/ [Concomitant]
     Indication: INTESTINAL PERFORATION
     Dosage: 2 CAPSULES (UNSPECIFIED DOSE), DAILY
  6. ASPIRINA [Concomitant]
     Active Substance: ASPIRIN
     Dosage: UNK
     Dates: start: 2005
  7. FOLIC ACID. [Concomitant]
     Active Substance: FOLIC ACID
     Dosage: ONE TABLET (5 MG), WEEKLY
  8. VITAMIN D                          /00107901/ [Concomitant]
     Active Substance: ERGOCALCIFEROL
     Dosage: 8 DROPS PER DAY
  9. DIOVAN [Concomitant]
     Active Substance: VALSARTAN
     Dosage: UNK
     Dates: start: 2011
  10. DIOVAN HCT [Concomitant]
     Active Substance: HYDROCHLOROTHIAZIDE\VALSARTAN
     Indication: BLOOD PRESSURE INCREASED
     Dosage: 1 TABLET (160MG, 12.5MG^ AND ^160^), DAILY
     Dates: start: 2011
  11. TECTA [Concomitant]
     Active Substance: PANTOPRAZOLE MAGNESIUM
     Indication: REFLUX GASTRITIS
     Dosage: ONE TABLET (40 MG), DAILY
  12. LINSEED                            /01649402/ [Concomitant]
     Dosage: 3 (CAPSULES), DAILY
  13. ACETYLSALICYLIC ACID [Concomitant]
     Active Substance: ASPIRIN
     Dosage: ONE TABLET (100 MG), DAILY

REACTIONS (15)
  - Suffocation feeling [Recovered/Resolved]
  - Infarction [Recovered/Resolved]
  - Wheezing [Recovered/Resolved]
  - Pain [Not Recovered/Not Resolved]
  - Blood thyroid stimulating hormone increased [Recovered/Resolved]
  - Decreased immune responsiveness [Unknown]
  - Throat irritation [Not Recovered/Not Resolved]
  - Urinary tract infection [Recovered/Resolved]
  - Peripheral swelling [Recovering/Resolving]
  - Musculoskeletal pain [Recovered/Resolved]
  - Candida infection [Recovered/Resolved]
  - Cough [Recovered/Resolved]
  - Tongue discolouration [Recovered/Resolved]
  - Increased upper airway secretion [Unknown]
  - Pain in extremity [Not Recovered/Not Resolved]

NARRATIVE: CASE EVENT DATE: 201412
